FAERS Safety Report 7902535-3 (Version None)
Quarter: 2011Q4

REPORT INFORMATION
  Report Type: 
  Country: None (occurrence: None)
  Receive Date: 20111108
  Receipt Date: 20111026
  Transmission Date: 20120403
  Serious: No
  Sender: FDA-Public Use
  Company Number: US-ELI_LILLY_AND_COMPANY-US201106000914

PATIENT
  Sex: Female
  Weight: 72.245 kg

DRUGS (3)
  1. FORTEO [Suspect]
     Indication: OSTEOPOROSIS
     Dosage: 20 UG, QD
     Route: 058
     Dates: start: 20110501, end: 20110601
  2. FORTEO [Suspect]
     Dosage: 20 UG, QD
     Route: 058
     Dates: end: 20110901
  3. FORTEO [Suspect]
     Dosage: 20 UG, QD
     Route: 058
     Dates: start: 20110925, end: 20111011

REACTIONS (15)
  - BACK PAIN [None]
  - MUSCULOSKELETAL PAIN [None]
  - HEADACHE [None]
  - DRUG DOSE OMISSION [None]
  - PAIN IN EXTREMITY [None]
  - ARTHRALGIA [None]
  - TACHYARRHYTHMIA [None]
  - MEMORY IMPAIRMENT [None]
  - INTENTIONAL DRUG MISUSE [None]
  - DEPRESSION [None]
  - NAUSEA [None]
  - VERTIGO [None]
  - DIZZINESS [None]
  - BONE PAIN [None]
  - PAIN [None]
